FAERS Safety Report 25393937 (Version 1)
Quarter: 2025Q2

REPORT INFORMATION
  Report Type: Report from Study
  Country: CA (occurrence: CA)
  Receive Date: 20250604
  Receipt Date: 20250604
  Transmission Date: 20250717
  Serious: Yes (Other)
  Sender: TAKEDA
  Company Number: CA-TAKEDA-2025TUS050519

PATIENT
  Sex: Male

DRUGS (4)
  1. HUMAN IMMUNOGLOBULIN G [Suspect]
     Active Substance: HUMAN IMMUNOGLOBULIN G
     Indication: Primary immunodeficiency syndrome
     Dosage: 7 GRAM, 1/WEEK
     Dates: start: 20250512
  2. SUCRALFATE [Concomitant]
     Active Substance: SUCRALFATE
  3. XERESE [Concomitant]
     Active Substance: ACYCLOVIR\HYDROCORTISONE
  4. PREVACID [Concomitant]
     Active Substance: LANSOPRAZOLE

REACTIONS (10)
  - Syncope [Unknown]
  - Blood pressure decreased [Unknown]
  - Gastrointestinal disorder [Not Recovered/Not Resolved]
  - Vision blurred [Unknown]
  - Pain in extremity [Not Recovered/Not Resolved]
  - Infusion site swelling [Recovered/Resolved]
  - Infusion site pain [Not Recovered/Not Resolved]
  - Vomiting [Unknown]
  - Fatigue [Not Recovered/Not Resolved]
  - Headache [Not Recovered/Not Resolved]
